FAERS Safety Report 5453070-6 (Version None)
Quarter: 2007Q3

REPORT INFORMATION
  Report Type: 
  Country: None (occurrence: None)
  Receive Date: 20070914
  Receipt Date: 20070904
  Transmission Date: 20080115
  Serious: Yes (Death, Other)
  Sender: FDA-Public Use
  Company Number: NL-PFIZER INC-2007072522

PATIENT
  Sex: Male
  Weight: 52 kg

DRUGS (9)
  1. CHAMPIX [Suspect]
     Indication: SMOKING CESSATION THERAPY
     Route: 048
     Dates: start: 20070620, end: 20070702
  2. ANTIBIOTICS [Concomitant]
     Indication: URINARY TRACT INFECTION
  3. IRBESARTAN [Concomitant]
     Indication: HYPERTENSION
  4. FLUVASTATIN [Concomitant]
     Indication: HYPERCHOLESTEROLAEMIA
  5. SERETIDE [Concomitant]
     Indication: CHRONIC OBSTRUCTIVE PULMONARY DISEASE
     Route: 039
  6. BERODUAL [Concomitant]
     Indication: CHRONIC OBSTRUCTIVE PULMONARY DISEASE
  7. CARBASALATE CALCIUM [Concomitant]
  8. QUINAPRIL HCL [Concomitant]
     Indication: HYPERTENSION
  9. HYDROCHLOROTHIAZIDE [Concomitant]
     Indication: HYPERTENSION

REACTIONS (5)
  - ABDOMINAL PAIN [None]
  - CHEST PAIN [None]
  - DEATH [None]
  - DYSPNOEA [None]
  - WEIGHT DECREASED [None]
